FAERS Safety Report 5261837-2 (Version None)
Quarter: 2007Q1

REPORT INFORMATION
  Report Type: 
  Country: None (occurrence: None)
  Receive Date: 20070310
  Receipt Date: 20070228
  Transmission Date: 20070707
  Serious: Yes (Other)
  Sender: FDA-Public Use
  Company Number: 2007UW04144

PATIENT
  Age: 19771 Day
  Sex: Male
  Weight: 127.3 kg

DRUGS (12)
  1. SEROQUEL [Suspect]
     Indication: PARANOIA
     Dates: start: 20020612, end: 20031001
  2. SEROQUEL [Suspect]
     Indication: SCHIZOPHRENIA
     Dates: start: 20020612, end: 20031001
  3. SEROQUEL [Suspect]
     Dosage: 400-600 MG
     Dates: start: 20031002
  4. SEROQUEL [Suspect]
     Dosage: 400-600 MG
     Dates: start: 20031002
  5. RISPERDAL [Suspect]
     Indication: PARANOIA
     Dates: start: 19990101, end: 20000811
  6. RISPERDAL [Suspect]
     Indication: SCHIZOPHRENIA
     Dates: start: 19990101, end: 20000811
  7. RISPERDAL [Suspect]
     Dates: start: 20020324, end: 20020423
  8. RISPERDAL [Suspect]
     Dates: start: 20020324, end: 20020423
  9. ZYPREXA [Suspect]
     Indication: PARANOIA
     Dosage: 5-10 MG
     Dates: start: 19990721, end: 20011216
  10. ZYPREXA [Suspect]
     Indication: SCHIZOPHRENIA
     Dosage: 5-10 MG
     Dates: start: 19990721, end: 20011216
  11. ABILIFY [Concomitant]
     Dosage: 10 MG
     Dates: start: 20050203
  12. GEODON [Concomitant]

REACTIONS (3)
  - DIABETES MELLITUS NON-INSULIN-DEPENDENT [None]
  - DIABETIC NEUROPATHY [None]
  - TARDIVE DYSKINESIA [None]
